FAERS Safety Report 23390511 (Version 7)
Quarter: 2025Q2

REPORT INFORMATION
  Report Type: Spontaneous
  Country: US (occurrence: US)
  Receive Date: 20240111
  Receipt Date: 20250410
  Transmission Date: 20250717
  Serious: Yes (Disabling, Other)
  Sender: AMGEN
  Company Number: US-HORIZON THERAPEUTICS-HZN-2023-008428

PATIENT
  Age: 66 Year
  Sex: Female

DRUGS (27)
  1. TEPEZZA [Suspect]
     Active Substance: TEPROTUMUMAB-TRBW
     Indication: Toxic goitre
     Dosage: 650 MILLIGRAM, Q3WK (GIVEN OVER 90 MINUTES)
     Route: 042
     Dates: start: 20230106, end: 20230106
  2. TEPEZZA [Suspect]
     Active Substance: TEPROTUMUMAB-TRBW
     Indication: Endocrine ophthalmopathy
     Dosage: 1300 MILLIGRAM, Q3WK (GIVEN OVER 90 MINUTES)
     Route: 042
     Dates: start: 20230127, end: 20230127
  3. TEPEZZA [Suspect]
     Active Substance: TEPROTUMUMAB-TRBW
     Indication: Graves^ disease
     Dosage: 1300 MILLIGRAM, Q3WK (GIVEN OVER ONE HOUR)
     Route: 042
     Dates: start: 20230217, end: 20230217
  4. TEPEZZA [Suspect]
     Active Substance: TEPROTUMUMAB-TRBW
     Dosage: 1300 MILLIGRAM, Q3WK (GIVEN OVER ONE HOUR)
     Route: 042
     Dates: start: 20230310, end: 20230310
  5. TEPEZZA [Suspect]
     Active Substance: TEPROTUMUMAB-TRBW
     Dosage: 1300 MILLIGRAM, Q3WK (GIVEN OVER ONE HOUR)
     Route: 042
     Dates: start: 20230331, end: 20230331
  6. TEPEZZA [Suspect]
     Active Substance: TEPROTUMUMAB-TRBW
     Dosage: 1300 MILLIGRAM, Q3WK (GIVEN OVER ONE HOUR)
     Route: 042
     Dates: start: 20230421, end: 20230421
  7. TEPEZZA [Suspect]
     Active Substance: TEPROTUMUMAB-TRBW
     Dosage: 1209 MILLIGRAM, Q3WK (GIVEN OVER ONE HOUR)
     Route: 042
     Dates: start: 20230512, end: 20230512
  8. TEPEZZA [Suspect]
     Active Substance: TEPROTUMUMAB-TRBW
     Dosage: 1209 MILLIGRAM, Q3WK (GIVEN OVER ONE HOUR)
     Route: 042
     Dates: start: 20230605, end: 20230605
  9. PREDNISONE [Concomitant]
     Active Substance: PREDNISONE
     Indication: Product used for unknown indication
     Dosage: 20 MILLIGRAM, QD (TAKE 3  TABLETS)
     Route: 048
  10. PREDNISONE [Concomitant]
     Active Substance: PREDNISONE
     Dosage: 40 MILLIGRAM, QD
     Route: 048
  11. PREDNISONE [Concomitant]
     Active Substance: PREDNISONE
     Dosage: 60 MILLIGRAM, QD
     Route: 048
  12. CLOPIDOGREL [Concomitant]
     Active Substance: CLOPIDOGREL BISULFATE
     Dosage: 75 MILLIGRAM, QD
     Route: 048
     Dates: start: 20220907
  13. LEVOTHYROXINE SODIUM [Concomitant]
     Active Substance: LEVOTHYROXINE SODIUM
     Route: 048
     Dates: start: 20220907
  14. LEVOTHYROXINE SODIUM [Concomitant]
     Active Substance: LEVOTHYROXINE SODIUM
     Dosage: 75 MICROGRAM, QD
     Route: 048
  15. NIFEDIPINE [Concomitant]
     Active Substance: NIFEDIPINE
     Dosage: 30 MILLIGRAM, QD
     Route: 048
     Dates: start: 20220907
  16. NIFEDIPINE [Concomitant]
     Active Substance: NIFEDIPINE
     Dosage: 60 MILLIGRAM, QD
     Route: 048
  17. NIFEDIPINE [Concomitant]
     Active Substance: NIFEDIPINE
     Dosage: 90 MILLIGRAM, QD
     Route: 048
  18. SPIRONOLACTONE [Concomitant]
     Active Substance: SPIRONOLACTONE
     Dosage: 50 MILLIGRAM, QD
     Route: 048
     Dates: start: 20220907
  19. SPIRONOLACTONE [Concomitant]
     Active Substance: SPIRONOLACTONE
     Dosage: 50 MILLIGRAM, BID
     Route: 048
  20. VENLAFAXINE [Concomitant]
     Active Substance: VENLAFAXINE HYDROCHLORIDE
     Dosage: 75 MILLIGRAM, QD
     Route: 048
     Dates: start: 20220907
  21. SALINE [Concomitant]
     Active Substance: SODIUM CHLORIDE
     Route: 065
     Dates: start: 20230106, end: 20230106
  22. GABAPENTIN [Concomitant]
     Active Substance: GABAPENTIN
     Dosage: 600 MILLIGRAM, BID
     Route: 048
     Dates: start: 20220907
  23. HYDROCHLOROTHIAZIDE [Concomitant]
     Active Substance: HYDROCHLOROTHIAZIDE
     Dosage: 25 MILLIGRAM, QD
     Route: 048
     Dates: start: 20220907
  24. ALBUTEROL SULFATE [Concomitant]
     Active Substance: ALBUTEROL SULFATE
     Dates: start: 20220907
  25. DICLOFENAC [Concomitant]
     Active Substance: DICLOFENAC
     Indication: Osteoarthritis
     Dosage: UNK UNK, BID (TO LESION AREAS)
     Route: 061
     Dates: start: 20231218
  26. IBUPROFEN [Concomitant]
     Active Substance: IBUPROFEN
     Indication: Osteoarthritis
     Dosage: 200 MILLIGRAM, Q6H
     Route: 048
     Dates: start: 20231218
  27. IBUPROFEN [Concomitant]
     Active Substance: IBUPROFEN
     Indication: Back pain
     Dosage: 200 MILLIGRAM, Q8H
     Route: 048

REACTIONS (33)
  - Deafness permanent [Not Recovered/Not Resolved]
  - Disability [Unknown]
  - Physical disability [Unknown]
  - Tinnitus [Unknown]
  - Fatigue [Recovered/Resolved]
  - Weight decreased [Unknown]
  - Muscle spasms [Unknown]
  - Injury [Unknown]
  - Pain [Unknown]
  - Emotional distress [Unknown]
  - Infusion site pruritus [Unknown]
  - Anxiety [Unknown]
  - Concomitant disease aggravated [Unknown]
  - Impaired quality of life [Unknown]
  - Discomfort [Unknown]
  - Auditory disorder [Unknown]
  - Product quality issue [Unknown]
  - Economic problem [Unknown]
  - Ear pain [Unknown]
  - Feeling abnormal [Unknown]
  - Autoscopy [Unknown]
  - Dehydration [Unknown]
  - Eye pain [Unknown]
  - Asthenopia [Unknown]
  - Decreased appetite [Unknown]
  - Depressed mood [Unknown]
  - Dry mouth [Unknown]
  - Vitamin D decreased [Unknown]
  - Pollakiuria [Unknown]
  - Fall [Unknown]
  - Constipation [Recovering/Resolving]
  - Rash macular [Unknown]
  - Hyperkeratosis [Unknown]

NARRATIVE: CASE EVENT DATE: 20230101
